FAERS Safety Report 8154848-0 (Version None)
Quarter: 2012Q1

REPORT INFORMATION
  Report Type: 
  Country: None (occurrence: None)
  Receive Date: 20120221
  Receipt Date: 20120213
  Transmission Date: 20120608
  Serious: Yes (Other)
  Sender: FDA-Public Use
  Company Number: PHEH2012US003048

PATIENT
  Sex: Female

DRUGS (16)
  1. FEXOFENADINE [Concomitant]
     Dosage: 30 MG, BID
     Route: 048
  2. SINGULAIR [Concomitant]
     Dosage: 10 MG, QD
     Route: 048
  3. CISAPRIDE [Concomitant]
     Dosage: 3.8 MG, 4XDAY
  4. ACETYLCYSTEINE [Concomitant]
     Dosage: 1 ML WITH 3 CC'S OF SALINE PM
  5. DOCUSATE SODIUM [Suspect]
     Dosage: 50MG/5ML, 3XDAY
  6. TOPAMAX [Concomitant]
     Dosage: 25 MG, TID
     Route: 048
  7. PREVACID [Concomitant]
     Dosage: 30 MG, BID
     Route: 048
  8. BUDESONIDE [Concomitant]
     Dosage: 5MG/2ML, BID
  9. BACLOFEN [Suspect]
     Dosage: 10 MG, QID
     Route: 048
  10. PHENOBARBITAL TAB [Concomitant]
     Dosage: 16.2 MG, BID
     Route: 048
  11. TOBI [Suspect]
     Dosage: 300 MG, BID
  12. BACLOFEN [Suspect]
     Dosage: 50 MG, QD
     Route: 048
  13. FLUTICASONE PROPIONATE [Concomitant]
     Dosage: 50 UG, BID
  14. TRANXENE [Suspect]
     Dosage: 3.75 MG, TID
     Route: 048
  15. ALBUTEROL SULFATE AND IPRATROPIUM BROMIDE [Concomitant]
     Dosage: 5MG/3MG TID
  16. LEVOXYL [Concomitant]
     Dosage: 25 UG, QD

REACTIONS (9)
  - UNRESPONSIVE TO STIMULI [None]
  - RENAL DISORDER [None]
  - SEDATION [None]
  - DEPRESSED LEVEL OF CONSCIOUSNESS [None]
  - HYPOTENSION [None]
  - SOMNOLENCE [None]
  - APNOEA [None]
  - LETHARGY [None]
  - COMA [None]
